FAERS Safety Report 25425115 (Version 1)
Quarter: 2025Q2

REPORT INFORMATION
  Report Type: Spontaneous
  Country: US (occurrence: US)
  Receive Date: 20250611
  Receipt Date: 20250611
  Transmission Date: 20250717
  Serious: No
  Sender: MYLAN
  Company Number: US-MYLANLABS-2025M1045395

PATIENT
  Age: 77 Year
  Sex: Female
  Weight: 73.94 kg

DRUGS (16)
  1. PANTOPRAZOLE SODIUM [Suspect]
     Active Substance: PANTOPRAZOLE SODIUM
     Indication: Gastrooesophageal reflux disease
     Dosage: 40 MILLIGRAM, PM (ONCE PER DAY IN THE EVENING)
     Dates: start: 20241128
  2. ATORVASTATIN [Concomitant]
     Active Substance: ATORVASTATIN
     Indication: Blood cholesterol increased
     Dosage: 10 MILLIGRAM, PM
     Dates: start: 2019
  3. TRIAMTERENE AND HYDROCHLOROTHIAZIDE [Concomitant]
     Active Substance: HYDROCHLOROTHIAZIDE\TRIAMTERENE
     Indication: Hypertension
     Dosage: 1 DOSAGE FORM, AM
     Dates: start: 2010
  4. CETIRIZINE [Concomitant]
     Active Substance: CETIRIZINE HYDROCHLORIDE
     Indication: Hypersensitivity
     Dosage: 10 MILLIGRAM, QD (DAILY)
  5. FAMOTIDINE [Concomitant]
     Active Substance: FAMOTIDINE
     Indication: Gastrooesophageal reflux disease
     Dosage: 20 MILLIGRAM, BID (TWO TIMES A DAY)
  6. CULTURELLE [Concomitant]
     Active Substance: LACTOBACILLUS RHAMNOSUS
     Indication: Probiotic therapy
     Dosage: UNK, QD (ONCE DAILY)
  7. FEVERFEW [Concomitant]
     Active Substance: FEVERFEW
     Indication: Migraine
     Dosage: 380 MILLIGRAM, TID (THREE TIMES A DAY)
  8. PEPTO-BISMOL [Concomitant]
     Active Substance: BISMUTH SUBSALICYLATE
  9. ALEVE [Concomitant]
     Active Substance: NAPROXEN SODIUM
  10. VITAMIN D3 [Concomitant]
     Active Substance: CHOLECALCIFEROL
     Dosage: 2000 INTERNATIONAL UNIT, QD (ONCE DAILY)
  11. COENZYME Q10 [Concomitant]
     Active Substance: DIETARY SUPPLEMENT\UBIDECARENONE
     Dosage: 100 MILLIGRAM, BID (TWO TIMES DAILY)
  12. FISH OIL [Concomitant]
     Active Substance: FISH OIL
     Dosage: UNK, BID (TWICE DAILY, YIELD 900 MG OMEGA 3))
  13. MAGNESIUM GLYCINATE [Concomitant]
     Active Substance: MAGNESIUM GLYCINATE
     Dosage: 200 MILLIGRAM, QD (DAILY)
  14. REFRESH OPTIVE MEGA-3 [Concomitant]
     Active Substance: CARBOXYMETHYLCELLULOSE SODIUM\GLYCERIN\POLYSORBATE 80
  15. MURO 128 [Concomitant]
     Active Substance: SODIUM CHLORIDE
     Dosage: UNK, HS (AT NIGHT)
  16. DOXYCYCLINE [Concomitant]
     Active Substance: DOXYCYCLINE
     Indication: Blepharitis

REACTIONS (3)
  - Migraine [Unknown]
  - Treatment failure [Recovered/Resolved]
  - Product quality issue [Unknown]

NARRATIVE: CASE EVENT DATE: 20250301
